FAERS Safety Report 20749956 (Version 1)
Quarter: 2022Q2

REPORT INFORMATION
  Report Type: Spontaneous
  Country: US (occurrence: None)
  Receive Date: 20220425
  Receipt Date: 20220425
  Transmission Date: 20220721
  Serious: Yes (Hospitalization)
  Sender: FDA-Public Use
  Company Number: None

PATIENT
  Age: 49 Year
  Sex: Female
  Weight: 119.25 kg

DRUGS (3)
  1. PERIDEX [Suspect]
     Active Substance: CHLORHEXIDINE GLUCONATE
     Indication: Tooth extraction
     Dosage: OTHER QUANTITY : 15 ML;?FREQUENCY : EVERY 12 HOURS;?OTHER ROUTE : SWISH AND SPIT;?
     Route: 050
     Dates: start: 20220402, end: 20220416
  2. Motrin 800mg prn [Concomitant]
  3. Klonopin 0.5mg bid prn [Concomitant]

REACTIONS (11)
  - Abdominal pain [None]
  - Diarrhoea [None]
  - Pruritus [None]
  - Rash [None]
  - Face oedema [None]
  - Dyspnoea [None]
  - Hypersensitivity [None]
  - Confusional state [None]
  - Respiratory tract oedema [None]
  - Serum sickness [None]
  - Swelling face [None]

NARRATIVE: CASE EVENT DATE: 20220409
